FAERS Safety Report 17113504 (Version 2)
Quarter: 2019Q4

REPORT INFORMATION
  Report Type: Spontaneous
  Country: JP (occurrence: JP)
  Receive Date: 20191205
  Receipt Date: 20191212
  Transmission Date: 20200122
  Serious: Yes (Hospitalization)
  Sender: FDA-Public Use
  Company Number: JP-AMGEN-JPNSP2019201427

PATIENT
  Age: 58 Year
  Sex: Female
  Weight: 39 kg

DRUGS (4)
  1. OXAROL [Concomitant]
     Active Substance: MAXACALCITOL
     Dosage: 2.5 MICROGRAM, 3 TIMES/WK (2.5 UG, Q56H)
     Route: 065
     Dates: start: 20190807
  2. PARSABIV [Suspect]
     Active Substance: ETELCALCETIDE HYDROCHLORIDE
     Indication: HYPERPARATHYROIDISM SECONDARY
     Dosage: 2.5 MILLIGRAM, 3 TIMES/WK (2.5 MG, Q56H)
     Route: 010
     Dates: start: 20191009
  3. HEPARIN [Concomitant]
     Active Substance: HEPARIN SODIUM
     Dosage: UNK
     Route: 065
  4. PRECIPITATED CALCIUM CARBONATE [Concomitant]
     Active Substance: CALCIUM CARBONATE
     Dosage: 3000 MILLIGRAM, QD (3000 MG, EVERYDAY)
     Route: 065

REACTIONS (2)
  - Fall [Unknown]
  - Hand fracture [Recovering/Resolving]

NARRATIVE: CASE EVENT DATE: 20191011
